FAERS Safety Report 5131889-9 (Version None)
Quarter: 2006Q4

REPORT INFORMATION
  Report Type: 
  Country: None (occurrence: None)
  Receive Date: 20061016
  Receipt Date: 20061004
  Transmission Date: 20070319
  Serious: Yes (Hospitalization, Disabling, Other)
  Sender: FDA-Public Use
  Company Number: 2006093736

PATIENT
  Age: 64 Year
  Sex: Female
  Weight: 76.6579 kg

DRUGS (3)
  1. BEXTRA [Suspect]
     Indication: ARTHRITIS
     Dosage: 25 MG (25 MG, 1 IN 1 D)
     Dates: start: 20040916, end: 20050301
  2. BEXTRA [Suspect]
     Indication: INFLAMMATION
     Dosage: 25 MG (25 MG, 1 IN 1 D)
     Dates: start: 20040916, end: 20050301
  3. BEXTRA [Suspect]
     Indication: PAIN
     Dosage: 25 MG (25 MG, 1 IN 1 D)
     Dates: start: 20040916, end: 20050301

REACTIONS (1)
  - CEREBROVASCULAR ACCIDENT [None]
